FAERS Safety Report 12641143 (Version 13)
Quarter: 2018Q1

REPORT INFORMATION
  Report Type: Spontaneous
  Country: US (occurrence: US)
  Receive Date: 20160810
  Receipt Date: 20180111
  Transmission Date: 20180508
  Serious: Yes (Hospitalization, Congenital Anomaly, Other)
  Sender: FDA-Public Use
  Company Number: PHHY2015US126551

PATIENT
  Sex: Male

DRUGS (2)
  1. ZOFRAN ODT [Suspect]
     Active Substance: ONDANSETRON HYDROCHLORIDE
     Indication: FOETAL EXPOSURE DURING PREGNANCY
     Dosage: MOTHER DOSE: 08 MG, Q12H
     Route: 064
  2. ONDANSETRON. [Suspect]
     Active Substance: ONDANSETRON
     Indication: FOETAL EXPOSURE DURING PREGNANCY
     Dosage: MOTHER DOSE: 08 MG, Q12H
     Route: 064

REACTIONS (77)
  - Congenital renal disorder [Unknown]
  - Congenital anomaly [Unknown]
  - Hydrocele [Unknown]
  - Altered state of consciousness [Unknown]
  - Iron deficiency anaemia [Unknown]
  - Gastrooesophageal reflux disease [Unknown]
  - Pulmonary artery stenosis congenital [Unknown]
  - Bronchomalacia [Unknown]
  - Cardiomyopathy [Unknown]
  - Anaemia [Unknown]
  - Otorrhoea [Unknown]
  - Swelling [Unknown]
  - Gastroenteritis [Unknown]
  - Congenital inguinal hernia [Unknown]
  - Congenital pulmonary artery anomaly [Unknown]
  - Cardiac failure [Unknown]
  - Hydronephrosis [Unknown]
  - Eczema infantile [Unknown]
  - Atrial septal defect [Unknown]
  - Tricuspid valve incompetence [Unknown]
  - Low cardiac output syndrome [Unknown]
  - Acute respiratory failure [Unknown]
  - Rhinitis allergic [Unknown]
  - Dehydration [Unknown]
  - Abdominal distension [Unknown]
  - Pyrexia [Unknown]
  - Phimosis [Unknown]
  - Congenital ureteric anomaly [Unknown]
  - Patent ductus arteriosus [Unknown]
  - Aorta hypoplasia [Unknown]
  - Diarrhoea [Unknown]
  - Renal failure [Unknown]
  - Foetal exposure during pregnancy [Unknown]
  - Haematochezia [Unknown]
  - Eczema herpeticum [Unknown]
  - Acute kidney injury [Unknown]
  - Right ventricular dilatation [Unknown]
  - Acute respiratory distress syndrome [Unknown]
  - Failure to thrive [Unknown]
  - Hypotension [Unknown]
  - Scar [Unknown]
  - Malabsorption [Unknown]
  - Sleep apnoea syndrome [Unknown]
  - Fatigue [Unknown]
  - Hypoplastic left heart syndrome [Unknown]
  - Cytogenetic abnormality [Unknown]
  - Right-to-left cardiac shunt [Unknown]
  - Pulmonary artery atresia [Unknown]
  - Hypoalbuminaemia [Unknown]
  - Chronic kidney disease [Unknown]
  - Cor pulmonale chronic [Unknown]
  - Bradycardia [Unknown]
  - Poor feeding infant [Unknown]
  - Wheezing [Unknown]
  - Rhinorrhoea [Unknown]
  - Upper respiratory tract infection [Unknown]
  - Pharyngitis [Unknown]
  - Acidosis [Unknown]
  - Heart disease congenital [Unknown]
  - Apnoea [Unknown]
  - Pulmonary hypertension [Unknown]
  - Pneumonia [Unknown]
  - Cardiomegaly [Unknown]
  - Cough [Unknown]
  - Nasal congestion [Unknown]
  - Prepuce redundant [Unknown]
  - Mitral valve atresia [Unknown]
  - Left-to-right cardiac shunt [Unknown]
  - Pleural effusion [Unknown]
  - Hypoxia [Unknown]
  - Injury [Unknown]
  - Ear pain [Unknown]
  - Decreased appetite [Unknown]
  - Oedema peripheral [Unknown]
  - Hepatomegaly [Unknown]
  - Atelectasis [Unknown]
  - Rash [Unknown]
